FAERS Safety Report 6516641-1 (Version None)
Quarter: 2009Q4

REPORT INFORMATION
  Report Type: 
  Country: None (occurrence: None)
  Receive Date: 20091223
  Receipt Date: 20091218
  Transmission Date: 20100525
  Serious: Yes (Hospitalization)
  Sender: FDA-Public Use
  Company Number: JP-ASTRAZENECA-2009SE17956

PATIENT
  Age: 68 Year
  Sex: Male
  Weight: 68 kg

DRUGS (30)
  1. DIPRIVAN [Suspect]
     Indication: SEDATION
     Dosage: DOSE UNKNOWN
     Route: 042
     Dates: start: 20090612, end: 20090703
  2. SULBACILLIN [Suspect]
     Indication: POST PROCEDURAL PNEUMONIA
     Dosage: DOSE UNKNOWN
     Route: 042
     Dates: start: 20090612, end: 20090618
  3. MEROPEN [Concomitant]
     Dosage: DOSE UNKNOWN
     Route: 042
     Dates: start: 20090619, end: 20090623
  4. OMEPRAL INJECTION [Concomitant]
     Dosage: DOSE UNKNOWN
     Route: 042
     Dates: start: 20090612, end: 20090622
  5. FENTANYL-100 [Concomitant]
     Dosage: DOSE UNKNOWN
     Route: 065
     Dates: start: 20090617, end: 20090622
  6. TANATRIL [Concomitant]
     Indication: HYPERTENSION
     Route: 048
     Dates: start: 19971219, end: 20090611
  7. CONIEL [Concomitant]
     Dosage: NUMBER OF SEPARATE DOSES UNKNOWN
     Route: 048
     Dates: start: 19971219, end: 20090611
  8. TAMSULOSIN HYDROCHLORIDE [Concomitant]
     Route: 048
     Dates: start: 19971219, end: 20090611
  9. ZYLORIC [Concomitant]
     Indication: HYPERURICAEMIA
     Route: 048
     Dates: end: 20090611
  10. DOBUPUM [Concomitant]
     Dosage: DOSE UNKNOWN
     Route: 042
     Dates: start: 20090612, end: 20090612
  11. MEYLON [Concomitant]
     Dosage: DOSE UNKNOWN
     Route: 065
     Dates: start: 20090612, end: 20090612
  12. PERDIPINE [Concomitant]
     Dosage: DOSE UNKNOWN
     Route: 042
     Dates: start: 20090612, end: 20090619
  13. INOVAN [Concomitant]
     Dosage: DOSE UNKNOWN
     Route: 042
     Dates: start: 20090612, end: 20090620
  14. MILRILA [Concomitant]
     Dosage: DOSE UNKNOWN
     Route: 065
     Dates: start: 20090612, end: 20090625
  15. NITOROL [Concomitant]
     Dosage: DOSE UNKNOWN
     Route: 065
     Dates: start: 20090612, end: 20090613
  16. ELASPOL [Concomitant]
     Dosage: DOSE UNKNOWN
     Route: 065
     Dates: start: 20090612, end: 20090624
  17. NOVOLIN R [Concomitant]
     Dosage: DOSE UNKNOWN
     Route: 065
     Dates: start: 20090612, end: 20090623
  18. ALPROSTADIL [Concomitant]
     Dosage: DOSE UNKNOWN
     Route: 065
     Dates: start: 20090612, end: 20090613
  19. RADICUT [Concomitant]
     Dosage: DOSE UNKNOWN
     Route: 065
     Dates: start: 20090612, end: 20090623
  20. MUSCULAX [Concomitant]
     Dosage: DOSE UNKNOWN
     Route: 065
     Dates: start: 20090618, end: 20090619
  21. VOLTAREN [Concomitant]
     Dosage: DOSE UNKNOWN
     Route: 048
     Dates: start: 20090618, end: 20090618
  22. GLOVENIN-I [Concomitant]
     Dosage: DOSE UNKNOWN
     Route: 042
     Dates: start: 20090619, end: 20090621
  23. HANP [Concomitant]
     Dosage: DOSE UNKNOWN
     Route: 065
     Dates: start: 20090621, end: 20090704
  24. GASTER [Concomitant]
     Dosage: DOSE UNKNOWN
     Route: 065
     Dates: start: 20090623, end: 20090703
  25. PENTCILLIN [Concomitant]
     Dosage: DOSE UNKNOWN, DISCONTINUED FROM 30-JUN-2009 TO 03-JUL-2009.
     Route: 065
     Dates: start: 20090623, end: 20090704
  26. SEPAMIT-R [Concomitant]
     Dosage: DOSE UNKNOWN
     Route: 048
     Dates: start: 20090704, end: 20090707
  27. OLMETEC [Concomitant]
     Dosage: DOSE UNKNOWN
     Route: 048
     Dates: start: 20090704, end: 20090707
  28. TAKEPRON [Concomitant]
     Dosage: DOSE UNKNOWN
     Route: 065
     Dates: start: 20090704, end: 20090707
  29. ARTIST [Concomitant]
     Dosage: DOSE UNKNOWN
     Route: 048
  30. RISPERDAL [Concomitant]
     Dosage: DOSE UNKNOWN
     Route: 048

REACTIONS (1)
  - TOXIC EPIDERMAL NECROLYSIS [None]
